FAERS Safety Report 8774174 (Version 4)
Quarter: 2013Q3

REPORT INFORMATION
  Report Type: Spontaneous
  Country: US (occurrence: US)
  Receive Date: 20120907
  Receipt Date: 20130813
  Transmission Date: 20140515
  Serious: Yes (Other)
  Sender: FDA-Public Use
  Company Number: PHEH2012US017171

PATIENT
  Sex: Female

DRUGS (5)
  1. GILENYA [Suspect]
     Dosage: 0.5 MG, QD
     Route: 048
     Dates: start: 20110812, end: 20120829
  2. PROVIGIL [Concomitant]
  3. EFFEXOR [Concomitant]
  4. LORAZEPAM [Concomitant]
  5. TRAZODONE [Concomitant]

REACTIONS (7)
  - Autoimmune hepatitis [Unknown]
  - Liver function test abnormal [Unknown]
  - Blood alkaline phosphatase increased [Unknown]
  - Alanine aminotransferase increased [Unknown]
  - Aspartate aminotransferase increased [Unknown]
  - Antinuclear antibody positive [Unknown]
  - Smooth muscle antibody positive [Unknown]
